FAERS Safety Report 9239149 (Version 1)
Quarter: 2013Q2

REPORT INFORMATION
  Report Type: Spontaneous
  Country: GB (occurrence: GB)
  Receive Date: 20130418
  Receipt Date: 20130418
  Transmission Date: 20140414
  Serious: Yes (Disabling)
  Sender: FDA-Public Use
  Company Number: GB-MERCK-1304GBR005197

PATIENT
  Sex: Male

DRUGS (2)
  1. PROPECIA 1MG FILM-COATED TABLET [Suspect]
     Dosage: UNK
     Dates: start: 1998
  2. PROSCAR 5 MG FILM-COATED TABLETS [Suspect]
     Dosage: UNK
     Dates: start: 2005

REACTIONS (4)
  - Emotional distress [Unknown]
  - Sexual dysfunction [Unknown]
  - Anxiety [Unknown]
  - Off label use [Unknown]
